FAERS Safety Report 10226740 (Version 1)
Quarter: 2014Q2

REPORT INFORMATION
  Report Type: Spontaneous
  Country: DE (occurrence: DE)
  Receive Date: 20140610
  Receipt Date: 20140610
  Transmission Date: 20141212
  Serious: Yes (Other)
  Sender: FDA-Public Use
  Company Number: PHHY2014DE068063

PATIENT
  Age: 40 Year
  Sex: Male

DRUGS (2)
  1. METFORMIN [Suspect]
     Dosage: 65 G, UNK
     Route: 048
  2. ETHANOL [Concomitant]

REACTIONS (2)
  - Overdose [Recovering/Resolving]
  - Suicide attempt [Unknown]
